FAERS Safety Report 21401981 (Version 5)
Quarter: 2025Q2

REPORT INFORMATION
  Report Type: Report from Study
  Country: JP (occurrence: JP)
  Receive Date: 20221003
  Receipt Date: 20250502
  Transmission Date: 20250717
  Serious: Yes (Death, Other)
  Sender: ASTELLAS
  Company Number: JP-ASTELLAS-2022JP014672

PATIENT
  Age: 55 Year
  Sex: Male

DRUGS (7)
  1. XOSPATA [Suspect]
     Active Substance: GILTERITINIB
     Indication: Acute myeloid leukaemia recurrent
     Route: 065
  2. XOSPATA [Suspect]
     Active Substance: GILTERITINIB
     Route: 065
  3. XOSPATA [Suspect]
     Active Substance: GILTERITINIB
     Route: 065
  4. XOSPATA [Suspect]
     Active Substance: GILTERITINIB
     Route: 065
  5. XOSPATA [Suspect]
     Active Substance: GILTERITINIB
     Route: 065
  6. FLUDARABINE [Concomitant]
     Active Substance: FLUDARABINE PHOSPHATE
     Indication: Bone marrow conditioning regimen
     Route: 065
  7. MELPHALAN [Concomitant]
     Active Substance: MELPHALAN
     Indication: Bone marrow conditioning regimen
     Route: 065

REACTIONS (11)
  - Sepsis [Fatal]
  - Cardiomyopathy [Unknown]
  - Neutropenia [Unknown]
  - Thrombocytopenia [Unknown]
  - Sepsis [Unknown]
  - Pneumocystis jirovecii pneumonia [Unknown]
  - Myocarditis [Unknown]
  - Renal impairment [Unknown]
  - Cardiac failure [Unknown]
  - Graft versus host disease oral [Unknown]
  - Myocarditis [Unknown]
